FAERS Safety Report 8166973-9 (Version None)
Quarter: 2012Q1

REPORT INFORMATION
  Report Type: 
  Country: None (occurrence: None)
  Receive Date: 20120103
  Receipt Date: 20111023
  Transmission Date: 20120608
  Serious: No
  Sender: FDA-Public Use
  Company Number: AE-2011-002591

PATIENT
  Age: 51 Year
  Sex: Female
  Weight: 104.3273 kg

DRUGS (6)
  1. SYNTHROID [Concomitant]
  2. RIBASPHERE [Concomitant]
  3. PEGASYS [Concomitant]
  4. INCIVEK [Suspect]
     Dosage: 2250 MG (750 MG,1 IN 8 HR),ORAL
     Route: 048
     Dates: start: 20111023
  5. ZOLOFT [Concomitant]
  6. ATENOLOL [Concomitant]

REACTIONS (3)
  - PYREXIA [None]
  - PAIN [None]
  - HEADACHE [None]
